FAERS Safety Report 11170430 (Version 2)
Quarter: 2015Q3

REPORT INFORMATION
  Report Type: Report from Study
  Country: TR (occurrence: TR)
  Receive Date: 20150608
  Receipt Date: 20150925
  Transmission Date: 20151125
  Serious: Yes (Hospitalization, Other)
  Sender: FDA-Public Use
  Company Number: TR-EMD SERONO-7296872

PATIENT
  Age: 51 Year
  Sex: Female
  Weight: 59 kg

DRUGS (5)
  1. BRUFEN                             /00109201/ [Concomitant]
     Active Substance: IBUPROFEN
     Indication: PAIN
  2. REBIF [Suspect]
     Active Substance: INTERFERON BETA-1A
     Indication: MULTIPLE SCLEROSIS
     Dates: start: 20110101, end: 201504
  3. IMURAN [Concomitant]
     Active Substance: AZATHIOPRINE
     Indication: MULTIPLE SCLEROSIS
  4. COLCHICUM DISPERT [Concomitant]
     Indication: FAMILIAL MEDITERRANEAN FEVER
  5. PAROL [Concomitant]
     Active Substance: ACETAMINOPHEN
     Indication: PAIN

REACTIONS (8)
  - Pulmonary hypertension [Recovered/Resolved]
  - Injection site pain [Not Recovered/Not Resolved]
  - Anaemia [Recovered/Resolved]
  - Ankle fracture [Unknown]
  - Leukopenia [Recovered/Resolved]
  - Injection site haemorrhage [Not Recovered/Not Resolved]
  - Renal atrophy [Not Recovered/Not Resolved]
  - Ligament sprain [Unknown]

NARRATIVE: CASE EVENT DATE: 201404
